FAERS Safety Report 15101111 (Version 1)
Quarter: 2018Q2

REPORT INFORMATION
  Report Type: Spontaneous
  Country: US (occurrence: US)
  Receive Date: 20180611
  Receipt Date: 20180611
  Transmission Date: 20180711
  Serious: Yes (Life-Threatening, Hospitalization, Disabling, Other)
  Sender: FDA-Public Use
  Company Number: None

PATIENT
  Age: 53 Year
  Sex: Female
  Weight: 74.7 kg

DRUGS (4)
  1. PROGRAF [Concomitant]
     Active Substance: TACROLIMUS\TACROLIMUS ANHYDROUS
  2. CELLCEPT [Concomitant]
     Active Substance: MYCOPHENOLATE MOFETIL\MYCOPHENOLATE MOFETIL HYDROCHLORIDE
  3. BENICAR [Suspect]
     Active Substance: OLMESARTAN MEDOXOMIL
     Indication: HYPERTENSION
     Dosage: ?          QUANTITY:1 TABLET(S);?
     Route: 048
     Dates: start: 20050906, end: 20080517
  4. LOSARTAN. [Concomitant]
     Active Substance: LOSARTAN

REACTIONS (11)
  - Primary biliary cholangitis [None]
  - Dizziness [None]
  - Gastrointestinal disorder [None]
  - Hepatitis [None]
  - Chronic hepatic failure [None]
  - Autoimmune hepatitis [None]
  - Hepatic failure [None]
  - Peripheral swelling [None]
  - Hepatic enzyme increased [None]
  - Liver transplant [None]
  - Jaundice [None]

NARRATIVE: CASE EVENT DATE: 20080417
